FAERS Safety Report 8102867-2 (Version None)
Quarter: 2012Q1

REPORT INFORMATION
  Report Type: 
  Country: None (occurrence: None)
  Receive Date: 20120201
  Receipt Date: 20120118
  Transmission Date: 20120608
  Serious: Yes (Other)
  Sender: FDA-Public Use
  Company Number: AU-CELGENEUS-008-20785-12011827

PATIENT

DRUGS (1)
  1. THALIDOMIDE [Suspect]
     Route: 048

REACTIONS (2)
  - OESOPHAGEAL OBSTRUCTION [None]
  - NEOPLASM [None]
